FAERS Safety Report 10290036 (Version 1)
Quarter: 2014Q3

REPORT INFORMATION
  Report Type: Spontaneous
  Country: US (occurrence: None)
  Receive Date: 20140707
  Receipt Date: 20140707
  Transmission Date: 20150326
  Serious: Yes (Other)
  Sender: FDA-Public Use
  Company Number: None

PATIENT
  Age: 15 Year
  Sex: Female
  Weight: 58.97 kg

DRUGS (1)
  1. PROACTIV [Suspect]
     Active Substance: BENZOYL PEROXIDE
     Indication: ACNE

REACTIONS (3)
  - Lip swelling [None]
  - Swelling face [None]
  - Eye swelling [None]

NARRATIVE: CASE EVENT DATE: 20140516
